FAERS Safety Report 9067772 (Version 6)
Quarter: 2015Q4

REPORT INFORMATION
  Report Type: Report from Study
  Country: JP (occurrence: JP)
  Receive Date: 20130206
  Receipt Date: 20151215
  Transmission Date: 20160305
  Serious: Yes (Life-Threatening, Hospitalization)
  Sender: FDA-Public Use
  Company Number: PHHY2013JP004644

PATIENT
  Age: 59 Year
  Sex: Male
  Weight: 90 kg

DRUGS (28)
  1. SOLU-MEDROL [Concomitant]
     Active Substance: METHYLPREDNISOLONE SODIUM SUCCINATE
     Dosage: 1 G, UNK
     Route: 051
     Dates: start: 20120215, end: 20120217
  2. SOLU-MEDROL [Concomitant]
     Active Substance: METHYLPREDNISOLONE SODIUM SUCCINATE
     Dosage: 1 G, UNK
     Route: 051
     Dates: start: 20120528, end: 20120530
  3. LOXONIN [Concomitant]
     Active Substance: LOXOPROFEN SODIUM
     Indication: PROPHYLAXIS
     Dosage: 60 MG, PRN (STARTED BEFORE THE ADMINISTRATION OF IMUSERA)
     Route: 048
  4. SOLU-MEDROL [Concomitant]
     Active Substance: METHYLPREDNISOLONE SODIUM SUCCINATE
     Dosage: 1 G, UNK
     Route: 051
     Dates: start: 20120618, end: 20120618
  5. GILENYA [Suspect]
     Active Substance: FINGOLIMOD HYDROCHLORIDE
     Indication: MULTIPLE SCLEROSIS
     Dosage: 0.5 MG, QD
     Route: 048
     Dates: start: 20121019, end: 20130110
  6. LIPITOR [Concomitant]
     Active Substance: ATORVASTATIN CALCIUM
     Indication: HYPERLIPIDAEMIA
     Dosage: 10 MG, UNK
     Route: 048
     Dates: start: 20120305
  7. EUGLUCON [Concomitant]
     Active Substance: GLYBURIDE
     Indication: PRODUCT USED FOR UNKNOWN INDICATION
     Dosage: 1.25 MG, UNK
     Route: 048
     Dates: start: 20120326
  8. SOLU-MEDROL [Concomitant]
     Active Substance: METHYLPREDNISOLONE SODIUM SUCCINATE
     Dosage: 1 G, UNK
     Route: 051
     Dates: start: 20120820, end: 20120822
  9. SOLU-MEDROL [Concomitant]
     Active Substance: METHYLPREDNISOLONE SODIUM SUCCINATE
     Indication: MULTIPLE SCLEROSIS
     Dosage: 1 G, UNK
     Route: 051
     Dates: start: 20120131, end: 20120202
  10. SOLU-MEDROL [Concomitant]
     Active Substance: METHYLPREDNISOLONE SODIUM SUCCINATE
     Dosage: 1 G, UNK
     Route: 051
     Dates: start: 20120622, end: 20120622
  11. SOLU-MEDROL [Concomitant]
     Active Substance: METHYLPREDNISOLONE SODIUM SUCCINATE
     Dosage: 1 G, UNK
     Route: 051
     Dates: start: 20120903, end: 20120905
  12. CONIEL [Concomitant]
     Active Substance: BENIDIPINE HYDROCHLORIDE
     Indication: HYPERTENSION
     Dosage: 4 MG, UNK
     Route: 048
     Dates: start: 20120203, end: 20120212
  13. GASTER [Concomitant]
     Active Substance: FAMOTIDINE
     Indication: MULTIPLE SCLEROSIS
     Dosage: 10 MG, UNK (STARTED OVER ONE YEAR BEFORE THE ADMINISTRATION OF IMUSERA)
     Route: 048
     Dates: end: 20130109
  14. SOLU-MEDROL [Concomitant]
     Active Substance: METHYLPREDNISOLONE SODIUM SUCCINATE
     Dosage: 1 G, UNK
     Route: 051
     Dates: start: 20120207, end: 20120209
  15. SOLU-MEDROL [Concomitant]
     Active Substance: METHYLPREDNISOLONE SODIUM SUCCINATE
     Dosage: 1 G, UNK
     Route: 051
     Dates: start: 20120826, end: 20120828
  16. SOLU-MEDROL [Concomitant]
     Active Substance: METHYLPREDNISOLONE SODIUM SUCCINATE
     Dosage: 1 G, UNK
     Route: 051
     Dates: start: 20120914, end: 20120914
  17. GILENYA [Suspect]
     Active Substance: FINGOLIMOD HYDROCHLORIDE
     Dosage: 0.5 MG, QD
     Route: 048
     Dates: start: 20130201
  18. BACLOFEN. [Concomitant]
     Active Substance: BACLOFEN
     Indication: MULTIPLE SCLEROSIS
     Dosage: 40 MG, UNK (STARTED OVER ONE YEAR BEFORE ADMINISTRATION OF IMUSERA)
     Route: 048
     Dates: end: 20130109
  19. EXFORGE [Concomitant]
     Active Substance: AMLODIPINE BESYLATE\VALSARTAN
     Indication: HYPERTENSION
     Dosage: 85MG (AMLODIPINE 5MG AND VALSARTAN 80MG)
     Route: 048
     Dates: start: 20120213, end: 20130201
  20. VESICARE [Concomitant]
     Active Substance: SOLIFENACIN SUCCINATE
     Indication: POLLAKIURIA
     Dosage: 2.5 MG, UNK
     Route: 048
     Dates: start: 20120702
  21. RIVOTRIL [Concomitant]
     Active Substance: CLONAZEPAM
     Indication: MULTIPLE SCLEROSIS
     Dosage: 1 MG (1 IN 1 D) (STARTED OVER ONE YEAR BEFORE THE ADMINISTRATION OF IMUSERA)
     Route: 048
  22. SOLU-MEDROL [Concomitant]
     Active Substance: METHYLPREDNISOLONE SODIUM SUCCINATE
     Dosage: 1 G, UNK
     Route: 051
     Dates: start: 20120620, end: 20120620
  23. AVONEX [Concomitant]
     Active Substance: INTERFERON BETA-1A
     Indication: MULTIPLE SCLEROSIS
     Dosage: 30 UG, QW (STARTED OVER ONE YEAR BEFORE ADMINISTRATION OF IMUSERA)
     Route: 030
     Dates: end: 20120521
  24. VOLTAREN//DICLOFENAC SODIUM [Concomitant]
     Indication: PROPHYLAXIS
     Dosage: 37.5 MG, PRN (STARTED BEFORE ADMINISTRATION OF IMUSERA)
     Route: 048
     Dates: end: 20120204
  25. VOGLIBOSE [Concomitant]
     Active Substance: VOGLIBOSE
     Indication: DIABETES MELLITUS
     Dosage: 0.6 MG, UNK
     Route: 048
     Dates: start: 20120305
  26. SOLU-MEDROL [Concomitant]
     Active Substance: METHYLPREDNISOLONE SODIUM SUCCINATE
     Dosage: 1 G, UNK
     Route: 051
     Dates: start: 20120604, end: 20120606
  27. SOLU-MEDROL [Concomitant]
     Active Substance: METHYLPREDNISOLONE SODIUM SUCCINATE
     Dosage: 1 G, UNK
     Route: 051
     Dates: start: 20120611, end: 20120613
  28. BETAFERON [Concomitant]
     Active Substance: INTERFERON BETA-1B
     Indication: MULTIPLE SCLEROSIS
     Dosage: 800 X 10 X 4 UNIT EVERY OTHER DAY
     Route: 058
     Dates: start: 20120622, end: 20120819

REACTIONS (1)
  - Myocardial infarction [Recovering/Resolving]

NARRATIVE: CASE EVENT DATE: 20130110
